FAERS Safety Report 20328609 (Version 1)
Quarter: 2022Q1

REPORT INFORMATION
  Report Type: Spontaneous
  Country: NL (occurrence: NL)
  Receive Date: 20220112
  Receipt Date: 20220112
  Transmission Date: 20220424
  Serious: Yes (Other)
  Sender: FDA-Public Use
  Company Number: None

PATIENT
  Age: 52 Year
  Sex: Female
  Weight: 75 kg

DRUGS (4)
  1. PREDNISONE [Suspect]
     Active Substance: PREDNISONE
     Indication: Antiinflammatory therapy
     Dosage: 120MG,PREDNISON / BRAND NAME NOT SPECIFIED,UNIT DOSE:1DF,THERAPY END DATE :ASKU
     Route: 065
     Dates: start: 20211213
  2. QUETIAPINE [Concomitant]
     Active Substance: QUETIAPINE
     Dosage: MODIFIED RELEASE TABLET, 400 MG (MILLIGRAM),QUETIAPINE TABLET MGA 400MG / BRAND NAME NOT SPECIFIED,T
  3. BIPERIDEEN  / AKINETON [Concomitant]
     Dosage: 6 MILLIGRAM DAILY; TABLET 3X 2MG PER DAY,BIPERIDEEN TABLET 2MG / AKINETON TABLET 2MG,UNIT DOSE:2MG,T
  4. DIAZEPAM [Concomitant]
     Active Substance: DIAZEPAM
     Dosage: 15 MILLIGRAM DAILY; TABLET 3X 5MG,DIAZEPAM TABLET 5MG / BRAND NAME NOT SPECIFIED,THERAPY START DATE:

REACTIONS (2)
  - Schizophrenia [Not Recovered/Not Resolved]
  - Feeling cold [Not Recovered/Not Resolved]

NARRATIVE: CASE EVENT DATE: 20211215
